FAERS Safety Report 7227741-5 (Version None)
Quarter: 2011Q1

REPORT INFORMATION
  Report Type: 
  Country: None (occurrence: None)
  Receive Date: 20110114
  Receipt Date: 20101026
  Transmission Date: 20110831
  Serious: Yes (Hospitalization)
  Sender: FDA-Public Use
  Company Number: PHHO2010BE14142

PATIENT
  Sex: Male

DRUGS (14)
  1. ASAFLOW [Concomitant]
  2. OLMETEC [Concomitant]
  3. KREDEX [Concomitant]
  4. OMEPRAZOLE [Concomitant]
  5. MYFORTIC [Suspect]
     Indication: RENAL TRANSPLANT
     Dosage: UNK
     Dates: start: 20090523
  6. BEFACT FORTE [Concomitant]
  7. LANTUS [Concomitant]
  8. NOVORAPID [Concomitant]
  9. NEORAL [Suspect]
     Indication: RENAL TRANSPLANT
     Dosage: UNK
     Dates: start: 20100228
  10. NO TREATMENT RECEIVED [Suspect]
     Dosage: UNK
  11. KAMILLOSAN ^NORGINE^ [Concomitant]
  12. MEDROL [Concomitant]
  13. MAREVAN [Concomitant]
  14. PRIMPERAN TAB [Concomitant]

REACTIONS (7)
  - OSTEOMYELITIS [None]
  - ARTHRITIS BACTERIAL [None]
  - DECUBITUS ULCER [None]
  - LEG AMPUTATION [None]
  - NEUROPATHIC ARTHROPATHY [None]
  - BONE MARROW OEDEMA [None]
  - SEPSIS [None]
